FAERS Safety Report 7706775-8 (Version None)
Quarter: 2011Q3

REPORT INFORMATION
  Report Type: 
  Country: None (occurrence: None)
  Receive Date: 20110824
  Receipt Date: 20110822
  Transmission Date: 20111222
  Serious: Yes (Other)
  Sender: FDA-Public Use
  Company Number: US-PFIZER INC-2010087863

PATIENT
  Sex: Male
  Weight: 81.179 kg

DRUGS (12)
  1. GLUCOSAMINE HYDROCHLORIDE/CHONDROITIN SULFATE [Concomitant]
     Indication: ARTHROPATHY
     Dosage: UNK, DAILY
  2. NASONEX [Concomitant]
     Indication: NASAL CONGESTION
     Dosage: 7.5MG ONE TO TWO TIMES A DAY AS NEEDED
  3. ZETIA [Concomitant]
     Dosage: UNK
  4. VITAMIN D [Concomitant]
     Dosage: 400 IU, DAILY
  5. NASONEX [Concomitant]
     Indication: DYSPNOEA
  6. ADVAIR DISKUS 100/50 [Concomitant]
     Indication: ASTHMA
     Dosage: 250/50 MG, AS NEEDED
  7. CENTRUM [Concomitant]
     Indication: VITAMIN SUPPLEMENTATION
     Dosage: UNK, DAILY
  8. FISH OIL [Concomitant]
     Dosage: UNK, DAILY
  9. LIPITOR [Suspect]
     Indication: BLOOD CHOLESTEROL ABNORMAL
     Dosage: 200 MG, DAILY
     Route: 048
  10. ADVAIR DISKUS 100/50 [Concomitant]
     Indication: ASTHMA
     Dosage: UNK
  11. ACETYLSALICYLIC ACID [Concomitant]
     Indication: ISCHAEMIC HEART DISEASE PROPHYLAXIS
     Dosage: 81 MG, DAILY
  12. LIPITOR [Suspect]
     Indication: CARDIAC DISORDER
     Dosage: 20 MG, 1X/DAY
     Route: 048
     Dates: start: 20010101

REACTIONS (5)
  - FALL [None]
  - PROSTATE CANCER [None]
  - URINARY INCONTINENCE [None]
  - NEUROPATHY PERIPHERAL [None]
  - POLLAKIURIA [None]
